FAERS Safety Report 10442122 (Version 3)
Quarter: 2015Q1

REPORT INFORMATION
  Report Type: Spontaneous
  Country: US (occurrence: None)
  Receive Date: 20140616
  Receipt Date: 20150129
  Transmission Date: 20150720
  Serious: Yes (Hospitalization, Other)
  Sender: FDA-Public Use
  Company Number: 2012-003336

PATIENT
  Age: 82 Year
  Sex: Female

DRUGS (22)
  1. FOSAMAX [Suspect]
     Active Substance: ALENDRONATE SODIUM
     Indication: BONE DISORDER
     Route: 048
  2. ALENDRONATE (ALENDRONATE SODIUM) [Suspect]
     Active Substance: ALENDRONATE SODIUM
     Indication: BONE DISORDER
     Route: 048
  3. FOSAMAX PLUS D [Suspect]
     Active Substance: ALENDRONATE SODIUM\CHOLECALCIFEROL
     Indication: OSTEOPENIA
     Route: 048
  4. FOSAMAX PLUS D [Suspect]
     Active Substance: ALENDRONATE SODIUM\CHOLECALCIFEROL
     Indication: BONE DISORDER
     Route: 048
  5. ALENDRONATE (ALENDRONATE SODIUM) [Suspect]
     Active Substance: ALENDRONATE SODIUM
     Indication: OSTEOPOROSIS
     Route: 048
  6. ACTONEL [Suspect]
     Active Substance: RISEDRONATE SODIUM
     Indication: OSTEOPOROSIS
     Route: 048
     Dates: start: 20060606, end: 20071031
  7. ACTONEL [Suspect]
     Active Substance: RISEDRONATE SODIUM
     Indication: OSTEOPENIA
     Route: 048
     Dates: start: 20060606, end: 20071031
  8. FUROSEMIDE (FUROSEMIDE) [Concomitant]
     Active Substance: FUROSEMIDE
  9. FOSAMAX [Suspect]
     Active Substance: ALENDRONATE SODIUM
     Indication: OSTEOPOROSIS
     Route: 048
  10. FOSAMAX [Suspect]
     Active Substance: ALENDRONATE SODIUM
     Indication: OSTEOPENIA
     Route: 048
  11. RISEDRONATE SODIUM. [Suspect]
     Active Substance: RISEDRONATE SODIUM
     Indication: OSTEOPOROSIS
     Route: 048
  12. RISEDRONATE SODIUM. [Suspect]
     Active Substance: RISEDRONATE SODIUM
     Indication: OSTEOPENIA
     Route: 048
  13. RISEDRONATE SODIUM. [Suspect]
     Active Substance: RISEDRONATE SODIUM
     Indication: BONE DISORDER
     Route: 048
  14. FENTANYL (FENTANYL) [Concomitant]
     Active Substance: FENTANYL
  15. ACTONEL [Suspect]
     Active Substance: RISEDRONATE SODIUM
     Indication: OSTEOPOROSIS PROPHYLAXIS
     Route: 048
     Dates: start: 20060606, end: 20071031
  16. FOSAMAX PLUS D [Suspect]
     Active Substance: ALENDRONATE SODIUM\CHOLECALCIFEROL
     Indication: OSTEOPOROSIS
     Route: 048
  17. ALENDRONATE (ALENDRONATE SODIUM) [Suspect]
     Active Substance: ALENDRONATE SODIUM
     Indication: OSTEOPENIA
     Route: 048
  18. PREMARIN (ESTROGENS CONJUGATED) [Concomitant]
  19. NITRO-TIME (GLUCERYL TRINITRATE) [Concomitant]
  20. PRAVASTATIN [Concomitant]
     Active Substance: PRAVASTATIN\PRAVASTATIN SODIUM
  21. POTASSIUM CHLORIDE (POTASSIUM  CHLORIDE) [Concomitant]
     Active Substance: POTASSIUM CHLORIDE
  22. METOPROLOL (METOPROLOL) [Concomitant]
     Active Substance: METOPROLOL

REACTIONS (10)
  - Skeletal injury [None]
  - Balance disorder [None]
  - Femur fracture [None]
  - Fall [None]
  - Low turnover osteopathy [None]
  - Radius fracture [None]
  - Fracture displacement [None]
  - Wrist fracture [None]
  - Pain [None]
  - Comminuted fracture [None]

NARRATIVE: CASE EVENT DATE: 20100904
